FAERS Safety Report 25904272 (Version 1)
Quarter: 2025Q4

REPORT INFORMATION
  Report Type: Spontaneous
  Country: US (occurrence: US)
  Receive Date: 20251010
  Receipt Date: 20251010
  Transmission Date: 20260117
  Serious: No
  Sender: SPROUT PHARMACEUTICALS
  Company Number: US-Sprout Pharmaceuticals, Inc.-2024SP000299

PATIENT

DRUGS (7)
  1. ADDYI [Suspect]
     Active Substance: FLIBANSERIN
     Indication: Product used for unknown indication
     Dosage: RX # 1551772, 100 MILLIGRAM
     Route: 048
     Dates: start: 202409, end: 202409
  2. DIENOGEST\ESTRADIOL VALERATE [Concomitant]
     Active Substance: DIENOGEST\ESTRADIOL VALERATE
     Indication: Contraception
     Dosage: UNK UNK
  3. BIOTIN [Concomitant]
     Active Substance: BIOTIN
     Indication: Nutritional supplementation
     Dosage: UNK UNK
  4. MAGNESIUM [Concomitant]
     Active Substance: MAGNESIUM
     Indication: Product used for unknown indication
     Dosage: UNK UNK
  5. Daily Balance apple cider vinegar + Ashwagandha (Bragg) [Concomitant]
     Indication: Product used for unknown indication
  6. Daily Balance apple cider vinegar + Ashwagandha (Bragg) [Concomitant]
     Indication: Product used for unknown indication
  7. CREATINE [Concomitant]
     Active Substance: CREATINE
     Indication: Product used for unknown indication

REACTIONS (9)
  - Adverse drug reaction [Recovered/Resolved]
  - Hypoaesthesia oral [Recovered/Resolved]
  - Hypoaesthesia [Recovered/Resolved]
  - Hyporeflexia [Recovered/Resolved]
  - Respiratory rate increased [Recovered/Resolved]
  - Nervousness [Recovered/Resolved]
  - Fear [Recovered/Resolved]
  - Intentional product use issue [Recovered/Resolved]
  - Somnolence [Recovered/Resolved]

NARRATIVE: CASE EVENT DATE: 20240910
